FAERS Safety Report 9257496 (Version 1)
Quarter: 2013Q2

REPORT INFORMATION
  Report Type: Spontaneous
  Country: CR (occurrence: CR)
  Receive Date: 20130426
  Receipt Date: 20130426
  Transmission Date: 20140414
  Serious: Yes (Other)
  Sender: FDA-Public Use
  Company Number: CR-PFIZER INC-2013130029

PATIENT
  Age: 41 Year
  Sex: Female
  Weight: 65 kg

DRUGS (4)
  1. TAFIL [Suspect]
     Indication: ANXIETY
     Dosage: 0.5 MG, 1X/DAY
     Route: 048
     Dates: start: 201209, end: 201212
  2. TAFIL [Suspect]
     Indication: ILL-DEFINED DISORDER
  3. ALTRULINE [Concomitant]
     Indication: ANXIETY
     Dosage: UNK
     Dates: start: 201209, end: 201212
  4. ALTRULINE [Concomitant]
     Indication: ILL-DEFINED DISORDER

REACTIONS (4)
  - Diplegia [Unknown]
  - Abdominal pain [Recovered/Resolved]
  - Nausea [Recovered/Resolved]
  - Decreased appetite [Recovered/Resolved]
